FAERS Safety Report 9178249 (Version 1)
Quarter: 2012Q4

REPORT INFORMATION
  Report Type: 
  Country: AR (occurrence: AR)
  Receive Date: 20121029
  Receipt Date: 20121029
  Transmission Date: 20130627
  Serious: Yes (Hospitalization, Other)
  Sender: FDA-Public Use
  Company Number: PHHY2012AR096388

PATIENT
  Sex: Male

DRUGS (1)
  1. EXELON PATCH [Suspect]
     Indication: MEMORY IMPAIRMENT
     Dosage: 4.6 mg, 5 cm2/24 h
     Route: 062
     Dates: start: 2011

REACTIONS (2)
  - Influenza [Recovering/Resolving]
  - Gout [Recovered/Resolved]
